FAERS Safety Report 12698915 (Version 1)
Quarter: 2016Q3

REPORT INFORMATION
  Report Type: Spontaneous
  Country: US (occurrence: US)
  Receive Date: 20160830
  Receipt Date: 20160830
  Transmission Date: 20161109
  Serious: No
  Sender: FDA-Public Use
  Company Number: US-GLAXOSMITHKLINE-US2016124385

PATIENT
  Age: 81 Year
  Sex: Female

DRUGS (10)
  1. TRAMADOL. [Concomitant]
     Active Substance: TRAMADOL
  2. CYMBALTA [Concomitant]
     Active Substance: DULOXETINE HYDROCHLORIDE
  3. MONTELUKAST [Concomitant]
     Active Substance: MONTELUKAST SODIUM
  4. TANZEUM [Suspect]
     Active Substance: ALBIGLUTIDE
     Indication: DIABETES MELLITUS
     Dosage: 30 MG, WE
     Route: 042
     Dates: start: 20160708
  5. CEREFOLIN [Concomitant]
     Active Substance: CYANOCOBALAMIN CO-57\LEVOMEFOLATE CALCIUM\PYRIDOXINE HYDROCHLORIDE\RIBOFLAVIN
  6. MYRBETRIQ [Concomitant]
     Active Substance: MIRABEGRON
  7. FENOFIBRATE. [Concomitant]
     Active Substance: FENOFIBRATE
  8. BYSTOLIC [Concomitant]
     Active Substance: NEBIVOLOL HYDROCHLORIDE
  9. SYMBICORT [Concomitant]
     Active Substance: BUDESONIDE\FORMOTEROL FUMARATE DIHYDRATE
  10. TUDORZA PRESSAIR [Concomitant]
     Active Substance: ACLIDINIUM BROMIDE

REACTIONS (2)
  - Diarrhoea [Recovering/Resolving]
  - Drug dose omission [Recovered/Resolved]

NARRATIVE: CASE EVENT DATE: 201607
